FAERS Safety Report 6971963-5 (Version None)
Quarter: 2010Q3

REPORT INFORMATION
  Report Type: 
  Country: None (occurrence: None)
  Receive Date: 20100908
  Receipt Date: 20100824
  Transmission Date: 20110219
  Serious: Yes (Disabling, Congenital Anomaly)
  Sender: FDA-Public Use
  Company Number: RS-MYLANLABS-2010S1015363

PATIENT
  Age: 12 Month

DRUGS (10)
  1. AMIODARONE [Suspect]
     Indication: TACHYCARDIA FOETAL
     Route: 064
  2. AMIODARONE [Suspect]
     Indication: SUPRAVENTRICULAR TACHYCARDIA
     Route: 064
  3. AMIODARONE [Suspect]
     Route: 064
  4. AMIODARONE [Suspect]
     Route: 064
  5. AMIODARONE [Suspect]
     Route: 064
  6. AMIODARONE [Suspect]
     Route: 064
  7. AMIODARONE [Suspect]
     Route: 065
  8. AMIODARONE [Suspect]
     Route: 065
  9. DIGOXIN [Concomitant]
     Indication: TACHYCARDIA FOETAL
     Route: 064
  10. PROPRANOLOL [Concomitant]
     Indication: SUPRAVENTRICULAR TACHYCARDIA
     Dosage: 10 + 5 + 5 MG/DAY
     Route: 065

REACTIONS (4)
  - ATAXIA [None]
  - DEVELOPMENTAL DELAY [None]
  - HYPOTONIA [None]
  - TALIPES [None]
